FAERS Safety Report 4883551-5 (Version None)
Quarter: 2006Q1

REPORT INFORMATION
  Report Type: 
  Country: None (occurrence: None)
  Receive Date: 20060117
  Receipt Date: 20060117
  Transmission Date: 20060701
  Serious: Yes (Life-Threatening, Other)
  Sender: FDA-Public Use
  Company Number: None

PATIENT
  Age: 22 Year
  Sex: Female
  Weight: 79.3795 kg

DRUGS (1)
  1. PAXIL [Suspect]
     Indication: SELF ESTEEM DECREASED
     Dosage: 20MG  ONCE DAILY  PO
     Route: 048
     Dates: start: 20050710, end: 20051113

REACTIONS (10)
  - AGGRESSION [None]
  - AMNESIA [None]
  - DEPRESSION [None]
  - DISTURBANCE IN ATTENTION [None]
  - DRUG WITHDRAWAL SYNDROME [None]
  - FEELING ABNORMAL [None]
  - MANIA [None]
  - MUSCLE TWITCHING [None]
  - NIGHT SWEATS [None]
  - PERSONALITY CHANGE [None]
